FAERS Safety Report 4630513-9 (Version None)
Quarter: 2005Q2

REPORT INFORMATION
  Report Type: 
  Country: None (occurrence: None)
  Receive Date: 20050408
  Receipt Date: 20010608
  Transmission Date: 20051028
  Serious: Yes (Hospitalization)
  Sender: FDA-Public Use
  Company Number: US-GLAXOSMITHKLINE-A0150984A

PATIENT
  Age: 45 Year
  Sex: Female
  Weight: 63.6 kg

DRUGS (8)
  1. LAMICTAL [Suspect]
     Dosage: 200MG PER DAY
     Route: 048
     Dates: start: 20000601
  2. DETROL [Concomitant]
  3. ROCALTROL [Concomitant]
     Indication: VITAMIN D DEFICIENCY
  4. PROZAC [Concomitant]
     Indication: DEPRESSION
  5. GEODON [Concomitant]
  6. PREVACID [Concomitant]
  7. REMERON [Concomitant]
  8. DEPAKOTE [Concomitant]

REACTIONS (29)
  - ABASIA [None]
  - ABNORMAL DREAMS [None]
  - AGITATION [None]
  - AMNESIA [None]
  - BRONCHITIS [None]
  - CERUMEN IMPACTION [None]
  - CONFUSIONAL STATE [None]
  - DELUSION [None]
  - DISTURBANCE IN ATTENTION [None]
  - DIZZINESS [None]
  - DRY SKIN [None]
  - EAR PAIN [None]
  - GENERAL PHYSICAL HEALTH DETERIORATION [None]
  - HAIR COLOUR CHANGES [None]
  - HALLUCINATION [None]
  - HEADACHE [None]
  - INCONTINENCE [None]
  - INFLUENZA LIKE ILLNESS [None]
  - INSOMNIA [None]
  - NAUSEA [None]
  - NERVOUSNESS [None]
  - RASH [None]
  - RASH ERYTHEMATOUS [None]
  - SINUSITIS [None]
  - STUPOR [None]
  - TOOTH DISCOLOURATION [None]
  - TOOTH DISORDER [None]
  - TREMOR [None]
  - VISION BLURRED [None]
